FAERS Safety Report 8286334-1 (Version None)
Quarter: 2012Q2

REPORT INFORMATION
  Report Type: 
  Country: None (occurrence: None)
  Receive Date: 20120411
  Receipt Date: 20120330
  Transmission Date: 20120825
  Serious: Yes (Other)
  Sender: FDA-Public Use
  Company Number: 2012031548

PATIENT
  Age: 53 Year
  Sex: Female

DRUGS (3)
  1. PRIVIGEN [Suspect]
     Indication: GUILLAIN-BARRE SYNDROME
     Dosage: INTRAVENOUS (NOT OTHERWISE SPECIFIED)
     Route: 042
     Dates: start: 20120131, end: 20120205
  2. PRIVIGEN [Suspect]
  3. PRIVIGEN [Suspect]

REACTIONS (4)
  - TRANSMISSION OF AN INFECTIOUS AGENT VIA A MEDICINAL PRODUCT [None]
  - BACTERIAL INFECTION [None]
  - PYREXIA [None]
  - BLOOD CULTURE POSITIVE [None]
